FAERS Safety Report 24223751 (Version 1)
Quarter: 2024Q3

REPORT INFORMATION
  Report Type: Spontaneous
  Country: KR (occurrence: KR)
  Receive Date: 20240819
  Receipt Date: 20240819
  Transmission Date: 20241016
  Serious: Yes (Other)
  Sender: PFIZER
  Company Number: KR-PFIZER INC-202400237778

PATIENT
  Age: 86 Year
  Sex: Female

DRUGS (1)
  1. PAXLOVID [Suspect]
     Active Substance: NIRMATRELVIR\RITONAVIR
     Indication: COVID-19 treatment
     Dosage: UNK
     Dates: start: 20240813

REACTIONS (2)
  - Coma [Unknown]
  - Somnolence [Unknown]

NARRATIVE: CASE EVENT DATE: 20240801
